FAERS Safety Report 5093566-2 (Version None)
Quarter: 2006Q3

REPORT INFORMATION
  Report Type: 
  Country: None (occurrence: None)
  Receive Date: 20060829
  Receipt Date: 20060809
  Transmission Date: 20061208
  Serious: Yes (Other)
  Sender: FDA-Public Use
  Company Number: US200608002042

PATIENT
  Age: 37 Year
  Sex: Female

DRUGS (3)
  1. CYMBALTA [Suspect]
     Indication: ANXIETY
     Dosage: 60 MG, DAILY (1/D), ORAL
     Route: 048
     Dates: start: 20050501, end: 20060101
  2. PAXIL [Concomitant]
  3. SEROQUEL [Concomitant]

REACTIONS (7)
  - CHILD NEGLECT [None]
  - FATIGUE [None]
  - HAEMORRHAGE [None]
  - INTENTIONAL SELF-INJURY [None]
  - LACERATION [None]
  - STRESS [None]
  - SYNCOPE [None]
